FAERS Safety Report 19812669 (Version 1)
Quarter: 2021Q3

REPORT INFORMATION
  Report Type: Report from Study
  Country: None (occurrence: US)
  Receive Date: 20210909
  Receipt Date: 20210909
  Transmission Date: 20211014
  Serious: Yes (Hospitalization, Other)
  Sender: FDA-Public Use
  Company Number: US-ABBVIE-21K-163-4041703-00

PATIENT
  Age: 54 Year
  Sex: Female
  Weight: 58.11 kg

DRUGS (5)
  1. HUMIRA [Suspect]
     Active Substance: ADALIMUMAB
     Route: 058
  2. MODERNA COVID?19 VACCINE [Concomitant]
     Active Substance: CX-024414
     Indication: COVID-19 IMMUNISATION
     Route: 030
     Dates: start: 202105, end: 202105
  3. HUMIRA [Suspect]
     Active Substance: ADALIMUMAB
     Indication: CROHN^S DISEASE
     Route: 058
     Dates: start: 2021
  4. SUBOXONE [Concomitant]
     Active Substance: BUPRENORPHINE HYDROCHLORIDE\NALOXONE HYDROCHLORIDE
     Indication: CROHN^S DISEASE
  5. MODERNA COVID?19 VACCINE [Concomitant]
     Active Substance: CX-024414
     Route: 030
     Dates: start: 202108, end: 202108

REACTIONS (22)
  - Cerebral haemorrhage [Recovering/Resolving]
  - Skull fracture [Recovering/Resolving]
  - Pain [Recovering/Resolving]
  - Memory impairment [Recovering/Resolving]
  - Road traffic accident [Recovering/Resolving]
  - Clavicle fracture [Recovering/Resolving]
  - Abdominal pain [Recovering/Resolving]
  - Pyrexia [Recovering/Resolving]
  - Gastric disorder [Not Recovered/Not Resolved]
  - Cervical vertebral fracture [Recovering/Resolving]
  - Stress [Not Recovered/Not Resolved]
  - Fall [Unknown]
  - Neck pain [Not Recovered/Not Resolved]
  - Diarrhoea [Recovering/Resolving]
  - Lung neoplasm malignant [Not Recovered/Not Resolved]
  - Brain oedema [Recovering/Resolving]
  - Crohn^s disease [Not Recovered/Not Resolved]
  - Pelvic fracture [Recovering/Resolving]
  - Lumbar vertebral fracture [Recovering/Resolving]
  - Upper limb fracture [Recovering/Resolving]
  - Limb injury [Not Recovered/Not Resolved]
  - Nausea [Recovering/Resolving]

NARRATIVE: CASE EVENT DATE: 2021
